FAERS Safety Report 8490676-4 (Version None)
Quarter: 2012Q3

REPORT INFORMATION
  Report Type: 
  Country: None (occurrence: None)
  Receive Date: 20120705
  Receipt Date: 20120625
  Transmission Date: 20120928
  Serious: Yes (Other)
  Sender: FDA-Public Use
  Company Number: US-BRISTOL-MYERS SQUIBB COMPANY-16709735

PATIENT
  Age: 70 Year
  Sex: Female
  Weight: 49 kg

DRUGS (6)
  1. CLIMARA [Concomitant]
     Route: 062
  2. KLONOPIN [Concomitant]
  3. ASPIRIN [Concomitant]
  4. KENALOG [Suspect]
     Dosage: SECOND DOSE 3MAY12
     Route: 008
     Dates: start: 20120410
  5. MULTI-VITAMIN [Concomitant]
  6. CALCIUM [Concomitant]

REACTIONS (8)
  - ANGIOEDEMA [None]
  - MUSCLE SPASMS [None]
  - CONSTIPATION [None]
  - NAUSEA [None]
  - HEADACHE [None]
  - MEDICATION ERROR [None]
  - DRUG INEFFECTIVE [None]
  - DIZZINESS [None]
